FAERS Safety Report 9066816 (Version 3)
Quarter: 2013Q1

REPORT INFORMATION
  Report Type: Spontaneous
  Country: FR (occurrence: FR)
  Receive Date: 20130214
  Receipt Date: 20130321
  Transmission Date: 20140127
  Serious: Yes (Other)
  Sender: FDA-Public Use
  Company Number: FR-GLAXOSMITHKLINE-B0865930A

PATIENT
  Sex: Male
  Weight: 75 kg

DRUGS (3)
  1. ARIXTRA [Suspect]
     Indication: THROMBOSIS PROPHYLAXIS
     Dosage: 2.5MG PER DAY
     Route: 065
     Dates: start: 20130201
  2. BIPROFENID [Concomitant]
     Indication: PAIN PROPHYLAXIS
     Route: 048
     Dates: start: 20130204, end: 20130204
  3. IXPRIM [Concomitant]
     Indication: PAIN PROPHYLAXIS
     Dosage: 1UNIT THREE TIMES PER DAY
     Route: 048
     Dates: start: 20130201

REACTIONS (2)
  - Haematoma [Recovering/Resolving]
  - Necrosis [Recovering/Resolving]
